FAERS Safety Report 9466265 (Version 3)
Quarter: 2013Q4

REPORT INFORMATION
  Report Type: Spontaneous
  Country: US (occurrence: US)
  Receive Date: 20130820
  Receipt Date: 20131230
  Transmission Date: 20140711
  Serious: No
  Sender: FDA-Public Use
  Company Number: US-PFIZER INC-2013237195

PATIENT
  Age: 80 Year
  Sex: Male
  Weight: 90.7 kg

DRUGS (5)
  1. TOVIAZ [Suspect]
     Indication: HYPERTONIC BLADDER
     Dosage: 4 MG, 1X/DAY
     Dates: start: 2012, end: 2012
  2. TOVIAZ [Suspect]
     Dosage: 8 MG, 1X/DAY
     Dates: start: 2012
  3. LEVOXYL [Concomitant]
     Indication: HYPOTHYROIDISM
     Dosage: 1 MG, DAILY
  4. ATENOLOL [Concomitant]
     Indication: CARDIAC DISORDER
     Dosage: 50 MG, DAILY
  5. BABY ASPIRIN [Concomitant]
     Indication: CARDIAC DISORDER
     Dosage: 81 MG, DAILY

REACTIONS (1)
  - Constipation [Not Recovered/Not Resolved]
